FAERS Safety Report 11872389 (Version 2)
Quarter: 2016Q1

REPORT INFORMATION
  Report Type: Spontaneous
  Country: US (occurrence: US)
  Receive Date: 20151228
  Receipt Date: 20160215
  Transmission Date: 20160526
  Serious: No
  Sender: FDA-Public Use
  Company Number: US-LEO PHARMA-239266

PATIENT
  Age: 46 Year
  Sex: Male

DRUGS (1)
  1. PICATO [Suspect]
     Active Substance: INGENOL MEBUTATE
     Indication: PRECANCEROUS SKIN LESION
     Route: 061
     Dates: start: 20151218, end: 20151220

REACTIONS (8)
  - Medication error [Unknown]
  - Drug administered at inappropriate site [Unknown]
  - Incorrect dose administered [Unknown]
  - Eye irritation [Recovered/Resolved]
  - Drug administration error [Unknown]
  - Accidental exposure to product [Unknown]
  - Lacrimation increased [Recovered/Resolved]
  - Ocular hyperaemia [Recovered/Resolved]

NARRATIVE: CASE EVENT DATE: 20151220
